FAERS Safety Report 23967378 (Version 1)
Quarter: 2024Q2

REPORT INFORMATION
  Report Type: Spontaneous
  Country: US (occurrence: None)
  Receive Date: 20240612
  Receipt Date: 20240612
  Transmission Date: 20240717
  Serious: No
  Sender: FDA-Public Use
  Company Number: 2024A134327

PATIENT
  Sex: Male
  Weight: 97.5 kg

DRUGS (1)
  1. FARXIGA [Suspect]
     Active Substance: DAPAGLIFLOZIN PROPANEDIOL
     Indication: Diabetes mellitus
     Route: 048
     Dates: start: 202401, end: 202404

REACTIONS (2)
  - Dysuria [Recovered/Resolved]
  - Penile haemorrhage [Recovered/Resolved]
